FAERS Safety Report 14874156 (Version 6)
Quarter: 2018Q2

REPORT INFORMATION
  Report Type: Report from Study
  Country: IT (occurrence: IT)
  Receive Date: 20180510
  Receipt Date: 20180629
  Transmission Date: 20180711
  Serious: Yes (Other)
  Sender: FDA-Public Use
  Company Number: IT-PFIZER INC-2018186285

PATIENT
  Age: 79 Year
  Sex: Female

DRUGS (1)
  1. ZOLEDRONIC ACID [Suspect]
     Active Substance: ZOLEDRONIC ACID
     Indication: BREAST CANCER
     Dosage: UNK(ENDOVENOUS)
     Route: 042

REACTIONS (2)
  - Sinusitis [Recovered/Resolved]
  - Osteonecrosis of jaw [Recovered/Resolved]
